FAERS Safety Report 4546968-4 (Version None)
Quarter: 2005Q1

REPORT INFORMATION
  Report Type: 
  Country: None (occurrence: None)
  Receive Date: 20050105
  Receipt Date: 20041222
  Transmission Date: 20050727
  Serious: Yes (Hospitalization)
  Sender: FDA-Public Use
  Company Number: 02100-JPN-04-0340

PATIENT
  Age: 35 Year
  Sex: Male

DRUGS (4)
  1. CILOSTAZOL [Suspect]
     Indication: THROMBOSIS
     Dosage: 50 MG
     Route: 048
     Dates: start: 20030820, end: 20041130
  2. FAMOTIDINE [Suspect]
     Indication: GASTRITIS
     Dosage: 20  MG
     Route: 048
     Dates: start: 20030820, end: 20041130
  3. LEVOFLOXACIN [Suspect]
     Route: 048
     Dates: start: 20041001, end: 20041001
  4. PREDNISOLONE [Concomitant]

REACTIONS (8)
  - HAEMOGLOBIN DECREASED [None]
  - NEPHRITIS INTERSTITIAL [None]
  - PLATELET COUNT DECREASED [None]
  - RED BLOOD CELLS URINE POSITIVE [None]
  - RED CELL DISTRIBUTION WIDTH INCREASED [None]
  - URINARY SEDIMENT PRESENT [None]
  - WHITE BLOOD CELL COUNT INCREASED [None]
  - WHITE BLOOD CELLS URINE POSITIVE [None]
